FAERS Safety Report 7796055 (Version 11)
Quarter: 2014Q3

REPORT INFORMATION
  Report Type: Spontaneous
  Country: FR (occurrence: FR)
  Receive Date: 20110202
  Receipt Date: 20140908
  Transmission Date: 20150326
  Serious: Yes (Disabling)
  Sender: FDA-Public Use
  Company Number: FR-US-EMD SERONO, INC.-7008751

PATIENT
  Age: 47 Year
  Sex: Female
  Weight: 51 kg

DRUGS (3)
  1. DEROXAT [Suspect]
     Active Substance: PAROXETINE HYDROCHLORIDE
     Indication: PRODUCT USED FOR UNKNOWN INDICATION
     Route: 048
  2. LYSANXIA [Suspect]
     Active Substance: PRAZEPAM
     Indication: PRODUCT USED FOR UNKNOWN INDICATION
     Route: 048
  3. REBIF [Suspect]
     Active Substance: INTERFERON BETA-1A
     Indication: MULTIPLE SCLEROSIS
     Route: 058
     Dates: start: 2002, end: 20100526

REACTIONS (3)
  - Pulmonary arterial hypertension [Recovered/Resolved with Sequelae]
  - Dyspnoea exertional [Recovered/Resolved with Sequelae]
  - Cor pulmonale chronic [Recovered/Resolved with Sequelae]

NARRATIVE: CASE EVENT DATE: 200912
